FAERS Safety Report 5654369-0 (Version None)
Quarter: 2008Q1

REPORT INFORMATION
  Report Type: 
  Country: None (occurrence: None)
  Receive Date: 20080305
  Receipt Date: 20080220
  Transmission Date: 20080703
  Serious: Yes (Hospitalization)
  Sender: FDA-Public Use
  Company Number: 230949J08USA

PATIENT
  Age: 70 Year
  Sex: Female
  Weight: 108.8633 kg

DRUGS (10)
  1. REBIF [Suspect]
     Indication: MULTIPLE SCLEROSIS
     Dosage: 44 MCG, 3 IN 1 WEEKS, SUBCUTANEOUS
     Route: 058
     Dates: start: 20030415
  2. TYLENOL(COTYLENOL) [Concomitant]
  3. PAROXETINE HCL [Concomitant]
  4. NEURONTIN [Concomitant]
  5. BACLOFEN [Concomitant]
  6. PROTONIX [Concomitant]
  7. LORAZEPAM [Concomitant]
  8. PERCOCET [Concomitant]
  9. DETROL [Concomitant]
  10. LIPITOR [Concomitant]

REACTIONS (5)
  - GAIT DISTURBANCE [None]
  - HYPERTENSION [None]
  - MONARTHRITIS [None]
  - MULTIPLE SCLEROSIS [None]
  - WALKING AID USER [None]
